FAERS Safety Report 6767400-6 (Version None)
Quarter: 2010Q2

REPORT INFORMATION
  Report Type: 
  Country: None (occurrence: None)
  Receive Date: 20100611
  Receipt Date: 20100611
  Transmission Date: 20101027
  Serious: No
  Sender: FDA-Public Use
  Company Number: None

PATIENT
  Age: 81 Year
  Sex: Female
  Weight: 68.0396 kg

DRUGS (1)
  1. AMLODIPINE [Suspect]
     Indication: HYPERTENSION
     Dosage: 1 TABLET ONCE DAILY PO
     Route: 048
     Dates: start: 20100527, end: 20100601

REACTIONS (3)
  - OEDEMA PERIPHERAL [None]
  - RASH [None]
  - REACTION TO DRUG EXCIPIENTS [None]
